FAERS Safety Report 9657928 (Version 2)
Quarter: 2014Q1

REPORT INFORMATION
  Report Type: Spontaneous
  Country: GB (occurrence: None)
  Receive Date: 20131029
  Receipt Date: 20140113
  Transmission Date: 20141002
  Serious: Yes (Death, Hospitalization)
  Sender: FDA-Public Use
  Company Number: GB-JNJFOC-20130902175

PATIENT
  Age: 68 Year
  Sex: Female
  Weight: 58 kg

DRUGS (7)
  1. DACOGEN (DECITABINE) LYOPHILIZED POWDER [Suspect]
     Indication: MYELODYSPLASTIC SYNDROME
     Dosage: 31 MG, 1 IN 1 DAY, INTRAVENOUS
     Route: 042
     Dates: start: 20130218, end: 20130222
  2. CIPROFLOXACIN (CIPROFLOXACIN) UNSPECIFIED [Concomitant]
  3. FUROSEMIDE (FUROSEMIDE) UNSPECIFIED [Concomitant]
  4. TRAMADOL (TRAMADOL HYDROCHLORIDE) UNSPECIFIED [Concomitant]
  5. MORPHINE SULPHATE (MORPHINE SULFATE) UNSPECIFIED [Concomitant]
  6. PARACETAMOL (PARACETAMOL) UNSPECIFIED [Concomitant]
  7. ORAMORPH (MORPHINE SULFATE) UNSPECIFIED [Concomitant]

REACTIONS (7)
  - Infection [None]
  - Haemoglobin decreased [None]
  - Disease progression [None]
  - Candiduria [None]
  - Myelodysplastic syndrome [None]
  - Fall [None]
  - Arthralgia [None]
